FAERS Safety Report 18861658 (Version 3)
Quarter: 2021Q4

REPORT INFORMATION
  Report Type: Spontaneous
  Country: US (occurrence: US)
  Receive Date: 20210208
  Receipt Date: 20211028
  Transmission Date: 20220303
  Serious: No
  Sender: FDA-Public Use
  Company Number: US-PFIZER INC-2021106600

PATIENT
  Age: 44 Year
  Sex: Female

DRUGS (3)
  1. ENBREL [Suspect]
     Active Substance: ETANERCEPT
     Indication: Rheumatoid arthritis
     Dosage: UNK
     Route: 065
  2. METHOTREXATE SODIUM [Suspect]
     Active Substance: METHOTREXATE SODIUM
     Indication: Rheumatoid arthritis
     Dosage: UNK
     Route: 065
     Dates: start: 201911
  3. HUMIRA [Concomitant]
     Active Substance: ADALIMUMAB
     Indication: Rheumatoid arthritis
     Dosage: UNK, WEEKLY
     Route: 058
     Dates: start: 2019

REACTIONS (9)
  - Drug hypersensitivity [Unknown]
  - Rash [Unknown]
  - Dermatitis allergic [Unknown]
  - Pain [Unknown]
  - Drug specific antibody present [Unknown]
  - Stomatitis [Unknown]
  - Herpes zoster [Unknown]
  - Pain in extremity [Unknown]
  - Musculoskeletal stiffness [Unknown]
